FAERS Safety Report 9505699 (Version 1)
Quarter: 2013Q1

REPORT INFORMATION
  Report Type: Spontaneous
  Country: US (occurrence: None)
  Receive Date: 20130220
  Receipt Date: 20130220
  Transmission Date: 20140127
  Serious: No
  Sender: FDA-Public Use
  Company Number: 1000041009

PATIENT
  Age: 71 Year
  Sex: Male

DRUGS (4)
  1. VIIBRYD [Suspect]
     Indication: DEPRESSION
     Dosage: 10MG (10 MG, 1 IN 1 D), ORAL
     Route: 048
     Dates: start: 201211, end: 201211
  2. VIIBRYD [Suspect]
     Indication: DEPRESSION
     Dosage: 20 MG (20 MG, 1 IN 1 D), ORAL
     Route: 048
     Dates: start: 201211, end: 201212
  3. VIIBRYD [Suspect]
     Dosage: 30 MG (30 MG, 1 IN 1 D), ORAL
     Route: 048
     Dates: start: 201211, end: 201211
  4. SYNTHROID LEVOTHYROXINE SODIUM LEVOTHYROXINE SODIUM [Concomitant]

REACTIONS (4)
  - Dysgeusia [None]
  - Insomnia [None]
  - Pollakiuria [None]
  - Psychomotor hyperactivity [None]
